FAERS Safety Report 9130979 (Version 1)
Quarter: 2013Q1

REPORT INFORMATION
  Report Type: Spontaneous
  Country: US (occurrence: US)
  Receive Date: 20130301
  Receipt Date: 20130301
  Transmission Date: 20140127
  Serious: No
  Sender: FDA-Public Use
  Company Number: US-JNJFOC-20130114523

PATIENT
  Sex: Female
  Weight: 196.41 kg

DRUGS (4)
  1. INVEGA SUSTENNA [Suspect]
     Indication: SCHIZOPHRENIA
     Route: 030
  2. LAMICTAL [Concomitant]
     Route: 065
  3. VISTARIL [Concomitant]
     Route: 065
  4. CYMBALTA [Concomitant]
     Route: 065

REACTIONS (2)
  - Weight increased [Not Recovered/Not Resolved]
  - Euphoric mood [Recovered/Resolved]
